FAERS Safety Report 15250284 (Version 1)
Quarter: 2018Q3

REPORT INFORMATION
  Report Type: Spontaneous
  Country: US (occurrence: US)
  Receive Date: 20180716
  Receipt Date: 20180716
  Transmission Date: 20181010
  Serious: No
  Sender: FDA-Public Use
  Company Number: None

PATIENT
  Sex: Male

DRUGS (6)
  1. PANTOPRAZOLE [Concomitant]
     Active Substance: PANTOPRAZOLE
  2. VALSTAR [Suspect]
     Active Substance: VALRUBICIN
  3. GABAPENTIN. [Concomitant]
     Active Substance: GABAPENTIN
  4. DULOXETINE. [Concomitant]
     Active Substance: DULOXETINE
  5. NORTRIPTYLIN [Concomitant]
     Active Substance: NORTRIPTYLINE
  6. VALSTAR [Suspect]
     Active Substance: VALRUBICIN
     Indication: BLADDER CANCER
     Route: 042
     Dates: start: 20180623

REACTIONS (1)
  - Bladder neoplasm surgery [None]
